FAERS Safety Report 10910068 (Version 1)
Quarter: 2015Q1

REPORT INFORMATION
  Report Type: Spontaneous
  Country: US (occurrence: US)
  Receive Date: 20150312
  Receipt Date: 20150312
  Transmission Date: 20150721
  Serious: No
  Sender: FDA-Public Use
  Company Number: US-SA-2014SA107078

PATIENT
  Sex: Female

DRUGS (2)
  1. NASACORT ALLERGY 24HR [Suspect]
     Active Substance: TRIAMCINOLONE ACETONIDE
     Indication: SINUS DISORDER
     Dosage: TAKEN FROM-COUPLE OF MONTHS AGO, TAKEN TO- 1 WEEKS AGO, DOSE- 2 SPRAYS IN EACH NOSTRIL
     Route: 045
  2. RESTASIS [Concomitant]
     Active Substance: CYCLOSPORINE
     Indication: DRY EYE

REACTIONS (2)
  - Dry eye [Not Recovered/Not Resolved]
  - Astigmatism [Not Recovered/Not Resolved]
